FAERS Safety Report 5496649-8 (Version None)
Quarter: 2007Q4

REPORT INFORMATION
  Report Type: 
  Country: None (occurrence: None)
  Receive Date: 20071025
  Receipt Date: 20071018
  Transmission Date: 20080405
  Serious: No
  Sender: FDA-Public Use
  Company Number: US-RB-008361-07

PATIENT
  Sex: Female

DRUGS (2)
  1. SUBUTEX [Suspect]
     Route: 060
     Dates: start: 20071016
  2. SUBOXONE [Suspect]
     Dosage: 4 MG INITIAL DOSE
     Route: 060
     Dates: start: 20071015, end: 20071015

REACTIONS (3)
  - HALLUCINATION [None]
  - NAUSEA [None]
  - VOMITING [None]
